FAERS Safety Report 10504054 (Version 2)
Quarter: 2014Q4

REPORT INFORMATION
  Report Type: Spontaneous
  Country: US (occurrence: US)
  Receive Date: 20141008
  Receipt Date: 20141008
  Transmission Date: 20150528
  Serious: No
  Sender: FDA-Public Use
  Company Number: US-BEH-2013037999

PATIENT
  Sex: Female
  Weight: 94 kg

DRUGS (19)
  1. IV [Suspect]
     Active Substance: UNSPECIFIED INGREDIENT
     Route: 058
  2. SYMBICORT [Concomitant]
     Active Substance: BUDESONIDE\FORMOTEROL FUMARATE DIHYDRATE
  3. LORTAB [Concomitant]
     Active Substance: ACETAMINOPHEN\HYDROCODONE BITARTRATE
  4. ALBUTEROL SULFATE HFA [Concomitant]
  5. DIPHENHYDRAMINE [Concomitant]
     Active Substance: DIPHENHYDRAMINE
  6. VANCOMYCIN [Concomitant]
     Active Substance: VANCOMYCIN
  7. ZITHROMAX [Concomitant]
     Active Substance: AZITHROMYCIN DIHYDRATE
  8. LEVAQUIN [Concomitant]
     Active Substance: LEVOFLOXACIN
  9. SYNTHROID [Concomitant]
     Active Substance: LEVOTHYROXINE SODIUM
  10. CYTOMEL [Concomitant]
     Active Substance: LIOTHYRONINE SODIUM
  11. CITRACAL D [Concomitant]
  12. ACETAMINOPHEN. [Concomitant]
     Active Substance: ACETAMINOPHEN
  13. IV [Suspect]
     Active Substance: UNSPECIFIED INGREDIENT
     Indication: HYPOGAMMAGLOBULINAEMIA
     Route: 058
  14. SINGULAIR [Concomitant]
     Active Substance: MONTELUKAST SODIUM
  15. CELEBREX [Concomitant]
     Active Substance: CELECOXIB
  16. METFORMIN HCL [Concomitant]
     Active Substance: METFORMIN HYDROCHLORIDE
  17. EPIPEN [Concomitant]
     Active Substance: EPINEPHRINE
  18. SOLU-MEDROL [Concomitant]
     Active Substance: METHYLPREDNISOLONE SODIUM SUCCINATE
  19. FISH OIL [Concomitant]
     Active Substance: FISH OIL

REACTIONS (3)
  - Infusion site pain [Unknown]
  - Lethargy [Unknown]
  - Fatigue [Unknown]
